FAERS Safety Report 4301656-4 (Version None)
Quarter: 2004Q1

REPORT INFORMATION
  Report Type: 
  Country: None (occurrence: None)
  Receive Date: 20040223
  Receipt Date: 20040216
  Transmission Date: 20041129
  Serious: Yes (Other)
  Sender: FDA-Public Use
  Company Number: 200412208GDDC

PATIENT
  Age: 61 Year
  Sex: Female

DRUGS (4)
  1. GLYBURIDE [Suspect]
     Indication: DIABETES MELLITUS NON-INSULIN-DEPENDENT
     Route: 048
     Dates: start: 20040114, end: 20040203
  2. ATENOLOL [Concomitant]
     Route: 048
  3. ISOSORBIDE MONONITRATE [Concomitant]
     Route: 048
  4. LOSEC I.V. [Concomitant]
     Route: 048

REACTIONS (1)
  - MIGRAINE [None]
